FAERS Safety Report 21773932 (Version 1)
Quarter: 2022Q4

REPORT INFORMATION
  Report Type: Report from Study
  Country: US (occurrence: US)
  Receive Date: 20221223
  Receipt Date: 20221223
  Transmission Date: 20230113
  Serious: No
  Sender: FDA-Public Use
  Company Number: US-ABBVIE-4246377

PATIENT
  Age: 77 Year
  Sex: Female

DRUGS (3)
  1. CREON [Suspect]
     Active Substance: PANCRELIPASE AMYLASE\PANCRELIPASE LIPASE\PANCRELIPASE PROTEASE
     Indication: Pancreatic carcinoma
     Dosage: TIME INTERVAL: 0.33333333 DAYS: START DATE TEXT: 2016 OR 2017?FORM STRENGTH: 36000 UNIT
     Route: 048
  2. Covid-19 vaccine [Concomitant]
     Indication: COVID-19 immunisation
     Route: 030
  3. LINZESS [Suspect]
     Active Substance: LINACLOTIDE
     Indication: Pancreatic carcinoma
     Dosage: FORM STRENGTH: 290 MICROGRAM?START DATE TEXT: 2016 OR 2017
     Route: 048

REACTIONS (6)
  - Headache [Recovering/Resolving]
  - Lumbar vertebral fracture [Not Recovered/Not Resolved]
  - Back pain [Recovered/Resolved]
  - Fall [Unknown]
  - Muscular weakness [Not Recovered/Not Resolved]
  - Odynophagia [Recovering/Resolving]

NARRATIVE: CASE EVENT DATE: 20221101
